FAERS Safety Report 23037138 (Version 1)
Quarter: 2023Q4

REPORT INFORMATION
  Report Type: Spontaneous
  Country: GB (occurrence: GB)
  Receive Date: 20231006
  Receipt Date: 20231006
  Transmission Date: 20240110
  Serious: No
  Sender: FDA-Public Use
  Company Number: None

PATIENT
  Age: 30 Year
  Sex: Female
  Weight: 58 kg

DRUGS (4)
  1. IBUPROFEN [Suspect]
     Active Substance: IBUPROFEN
     Indication: Ill-defined disorder
     Dosage: UNK
     Route: 065
     Dates: start: 20230628
  2. BENZOYL PEROXIDE [Concomitant]
     Active Substance: BENZOYL PEROXIDE
     Indication: Ill-defined disorder
     Dosage: UNK, HS (APPLY AT NIGHT)
     Route: 065
     Dates: start: 20230505, end: 20230515
  3. EPIDUO [Concomitant]
     Active Substance: ADAPALENE\BENZOYL PEROXIDE
     Indication: Acne
     Dosage: UNK, QD (APPLY THINLY ONCE IN EVENING FOR ACNE)
     Route: 065
     Dates: start: 20230628
  4. LYMECYCLINE [Concomitant]
     Active Substance: LYMECYCLINE
     Indication: Ill-defined disorder
     Dosage: UNK, QD (TAKE ONE DAILY AS DIRECTED)
     Route: 065
     Dates: start: 20230628

REACTIONS (1)
  - Rash [Unknown]

NARRATIVE: CASE EVENT DATE: 20230720
